FAERS Safety Report 8589635-2 (Version None)
Quarter: 2012Q3

REPORT INFORMATION
  Report Type: 
  Country: None (occurrence: None)
  Receive Date: 20120813
  Receipt Date: 20120801
  Transmission Date: 20120928
  Serious: Yes (Hospitalization, Disabling)
  Sender: FDA-Public Use
  Company Number: FR-ROCHE-1079249

PATIENT
  Age: 68 Year
  Sex: Female
  Weight: 73 kg

DRUGS (4)
  1. ZELBORAF [Suspect]
     Indication: METASTATIC MALIGNANT MELANOMA
     Route: 048
     Dates: start: 20120229
  2. RAMIPRIL [Concomitant]
     Route: 048
  3. ASPIRIN [Concomitant]
     Route: 065
  4. ATORVASTATIN [Concomitant]
     Route: 065

REACTIONS (4)
  - RASH [None]
  - RETINAL ARTERY THROMBOSIS [None]
  - VISUAL ACUITY REDUCED [None]
  - HEADACHE [None]
